FAERS Safety Report 6200378-2 (Version None)
Quarter: 2009Q2

REPORT INFORMATION
  Report Type: 
  Country: None (occurrence: None)
  Receive Date: 20090522
  Receipt Date: 20090515
  Transmission Date: 20091009
  Serious: Yes (Hospitalization)
  Sender: FDA-Public Use
  Company Number: US-PURDUE-USA-2009-0038199

PATIENT
  Sex: Female
  Weight: 80.3 kg

DRUGS (2)
  1. DILAUDID [Suspect]
     Indication: CANCER PAIN
     Dosage: UNK
     Route: 048
     Dates: start: 20080601
  2. ZOLEDRONIC ACID [Concomitant]
     Dosage: UNK
     Dates: start: 20090101

REACTIONS (4)
  - CONSTIPATION [None]
  - DIARRHOEA [None]
  - INCONTINENCE [None]
  - URINARY TRACT INFECTION [None]
